FAERS Safety Report 6408538-2 (Version None)
Quarter: 2009Q4

REPORT INFORMATION
  Report Type: 
  Country: None (occurrence: None)
  Receive Date: 20091021
  Receipt Date: 20090921
  Transmission Date: 20100525
  Serious: No
  Sender: FDA-Public Use
  Company Number: US-BAYER-200914827BCC

PATIENT
  Age: 83 Year
  Sex: Female
  Weight: 38 kg

DRUGS (5)
  1. ALEVE (CAPLET) [Suspect]
     Indication: BACK PAIN
     Dosage: UNIT DOSE: 220 MG
     Route: 048
     Dates: start: 20090919
  2. HYDROCORTISONE [Concomitant]
     Route: 065
  3. NEXIUM [Concomitant]
     Route: 065
  4. FLUDROCORTISONE [Concomitant]
     Route: 065
  5. UNKNOWN THYROID MEDICATION [Concomitant]
     Route: 065

REACTIONS (2)
  - FREQUENT BOWEL MOVEMENTS [None]
  - POLLAKIURIA [None]
